FAERS Safety Report 7383756-8 (Version None)
Quarter: 2011Q1

REPORT INFORMATION
  Report Type: 
  Country: None (occurrence: None)
  Receive Date: 20110330
  Receipt Date: 20110317
  Transmission Date: 20110831
  Serious: Yes (Other)
  Sender: FDA-Public Use
  Company Number: US-ELI_LILLY_AND_COMPANY-US201103005685

PATIENT
  Age: 53 Year
  Sex: Female

DRUGS (3)
  1. EFFIENT [Suspect]
     Indication: STENT PLACEMENT
     Dosage: 60 MG, UNK
  2. EFFIENT [Suspect]
     Dosage: 10 MG, DAILY (1/D)
  3. ASPIRIN [Concomitant]

REACTIONS (1)
  - IN-STENT CORONARY ARTERY RESTENOSIS [None]
